FAERS Safety Report 11300120 (Version 1)
Quarter: 2015Q3

REPORT INFORMATION
  Report Type: Spontaneous
  Country: US (occurrence: US)
  Receive Date: 20150722
  Receipt Date: 20150722
  Transmission Date: 20151125
  Serious: No
  Sender: FDA-Public Use
  Company Number: US-ELI_LILLY_AND_COMPANY-US201306002437

PATIENT
  Age: 50 Year
  Sex: Female

DRUGS (6)
  1. HUMATROPE [Suspect]
     Active Substance: SOMATROPIN
     Indication: BLOOD GROWTH HORMONE
     Dosage: UNK, UNK
     Dates: start: 1999
  2. HUMATROPE [Suspect]
     Active Substance: SOMATROPIN
     Dosage: UNK. UNK
     Dates: start: 201304
  3. ZOCOR [Concomitant]
     Active Substance: SIMVASTATIN
  4. LISINOPRIL. [Concomitant]
     Active Substance: LISINOPRIL
  5. NORDITROPINE [Concomitant]
     Active Substance: SOMATROPIN
  6. WELLBUTRIN XL [Concomitant]
     Active Substance: BUPROPION HYDROCHLORIDE

REACTIONS (1)
  - Chondropathy [Unknown]

NARRATIVE: CASE EVENT DATE: 201301
